FAERS Safety Report 20829056 (Version 2)
Quarter: 2022Q2

REPORT INFORMATION
  Report Type: Spontaneous
  Country: US (occurrence: US)
  Receive Date: 20220513
  Receipt Date: 20220520
  Transmission Date: 20220721
  Serious: No
  Sender: FDA-Public Use
  Company Number: US-SA-SAC20220510001286

PATIENT
  Age: 60 Year
  Sex: Male

DRUGS (2)
  1. CABLIVI [Suspect]
     Active Substance: CAPLACIZUMAB-YHDP
     Indication: Thrombotic microangiopathy
     Dosage: 11 MG, QD
     Route: 058
     Dates: start: 20220430
  2. PREDNISONE [Suspect]
     Active Substance: PREDNISONE
     Dosage: 10 MG, TID
     Route: 048

REACTIONS (4)
  - Oral candidiasis [Unknown]
  - Paraesthesia oral [Unknown]
  - Blood blister [Unknown]
  - Oral pain [Unknown]

NARRATIVE: CASE EVENT DATE: 20220101
